FAERS Safety Report 8455251-6 (Version None)
Quarter: 2012Q2

REPORT INFORMATION
  Report Type: 
  Country: None (occurrence: None)
  Receive Date: 20120621
  Receipt Date: 20120615
  Transmission Date: 20120825
  Serious: Yes (Death)
  Sender: FDA-Public Use
  Company Number: DE-SANOFI-AVENTIS-2012SA039179

PATIENT
  Age: 52 Year
  Sex: Male
  Weight: 100 kg

DRUGS (4)
  1. CLOPIDOGREL BISULFATE [Suspect]
     Indication: ACUTE CORONARY SYNDROME
     Route: 048
     Dates: start: 20120130, end: 20120130
  2. ASPIRIN [Concomitant]
  3. HEPARIN [Concomitant]
  4. CLOPIDOGREL BISULFATE [Suspect]
     Route: 048
     Dates: start: 20120131

REACTIONS (1)
  - CARDIOGENIC SHOCK [None]
